FAERS Safety Report 5677931-8 (Version None)
Quarter: 2008Q1

REPORT INFORMATION
  Report Type: 
  Country: None (occurrence: None)
  Receive Date: 20080325
  Receipt Date: 20080321
  Transmission Date: 20080703
  Serious: Yes (Death, Life-Threatening, Hospitalization)
  Sender: FDA-Public Use
  Company Number: US-RB-008447-07

PATIENT
  Sex: Male

DRUGS (8)
  1. SUBOXONE [Suspect]
     Route: 060
     Dates: start: 20060807
  2. SUBOXONE [Suspect]
     Indication: PAIN
     Route: 060
     Dates: start: 20070914
  3. SUBOXONE [Suspect]
     Dosage: DOSE WAS TITRATED DOWN FROM 48MG TO 16MG PER DAY OVER TIME.
     Route: 060
     Dates: end: 20070913
  4. BENAZEPRIL HYDROCHLORIDE [Concomitant]
     Indication: HYPERTENSION
     Route: 048
  5. DEPAKOTE [Concomitant]
     Indication: BIPOLAR DISORDER
     Dosage: 4 TABLETS A DAY
     Route: 048
  6. LOPRESSOR [Concomitant]
     Indication: HYPERTENSION
     Route: 048
  7. TRICOR [Concomitant]
     Route: 048
  8. ZYPREXA [Concomitant]
     Indication: BIPOLAR DISORDER
     Route: 048

REACTIONS (2)
  - ACUTE MYOCARDIAL INFARCTION [None]
  - SUICIDAL IDEATION [None]
